FAERS Safety Report 18385752 (Version 1)
Quarter: 2020Q4

REPORT INFORMATION
  Report Type: Spontaneous
  Country: NL (occurrence: NL)
  Receive Date: 20201015
  Receipt Date: 20201015
  Transmission Date: 20210114
  Serious: Yes (Hospitalization, Other)
  Sender: FDA-Public Use
  Company Number: NL-AUROBINDO-AUR-APL-2020-052105

PATIENT
  Age: 47 Year
  Sex: Male

DRUGS (4)
  1. OXALIPLATIN. [Suspect]
     Active Substance: OXALIPLATIN
     Indication: GASTRIC CANCER
     Dosage: 210 MILLIGRAM 3 WEEKS (DATE OF MOST RECENT DOSE OF OXALIPLATIN PRIOR TO AE ONSET: 04/DEC/2018)
     Route: 042
     Dates: start: 20181004
  2. ATEZOLIZUMAB. [Suspect]
     Active Substance: ATEZOLIZUMAB
     Indication: GASTRIC CANCER
     Dosage: 1200 MILLIGRAM 3 WEEKS (DATE OF MOST RECENT DOSE OF ATEZOLIZUMAB PRIOR TO AE ONSET: 04/DEC/2018 P)
     Route: 042
     Dates: start: 20180914
  3. DOCETAXEL. [Suspect]
     Active Substance: DOCETAXEL
     Indication: GASTRIC CANCER
     Dosage: 79 MILLIGRAM 3 WEEKS (DATE OF MOST RECENT DOSE OF DOCETAXEL PRIOR TO AE ONSET: 04/DEC/2018)
     Route: 042
     Dates: start: 20181004
  4. CAPECITABINE. [Suspect]
     Active Substance: CAPECITABINE
     Indication: GASTRIC CANCER
     Dosage: DATE OF MOST RECENT DOSE OF CAPACETABINE PRIOR TO AE ONSET: 12/DEC/2018
     Route: 048
     Dates: start: 20181004, end: 20181212

REACTIONS (1)
  - Wound infection [Recovered/Resolved]

NARRATIVE: CASE EVENT DATE: 20190131
